FAERS Safety Report 25730321 (Version 1)
Quarter: 2025Q3

REPORT INFORMATION
  Report Type: Spontaneous
  Country: US (occurrence: None)
  Receive Date: 20250827
  Receipt Date: 20250827
  Transmission Date: 20251021
  Serious: Yes (Hospitalization)
  Sender: FDA-CTU
  Company Number: None

PATIENT
  Age: 82 Year
  Sex: Male

DRUGS (12)
  1. TACROLIMUS [Suspect]
     Active Substance: TACROLIMUS
     Indication: Lung transplant
     Route: 048
     Dates: start: 20191123
  2. TACROLIMUS [Suspect]
     Active Substance: TACROLIMUS
     Route: 048
  3. ATORVASTATIN [Concomitant]
     Active Substance: ATORVASTATIN
  4. BENADRYL ALG [Concomitant]
  5. ELIQUIS [Concomitant]
     Active Substance: APIXABAN
  6. EZETIMIBE [Concomitant]
     Active Substance: EZETIMIBE
  7. FOLIC ACID [Concomitant]
     Active Substance: FOLIC ACID
  8. HUMALOG KIWK INJ [Concomitant]
  9. JARDIANCE [Concomitant]
     Active Substance: EMPAGLIFLOZIN
  10. MAGNESIUM OXIDE [Concomitant]
     Active Substance: MAGNESIUM OXIDE
  11. MULTIVITAMIN ADLT 50+ [Concomitant]
  12. MYCOPHENOLATE MOFETIL [Concomitant]
     Active Substance: MYCOPHENOLATE MOFETIL

REACTIONS (1)
  - Nerve compression [None]

NARRATIVE: CASE EVENT DATE: 20250806
